FAERS Safety Report 18626246 (Version 2)
Quarter: 2021Q1

REPORT INFORMATION
  Report Type: Report from Study
  Country: None (occurrence: US)
  Receive Date: 20201216
  Receipt Date: 20210119
  Transmission Date: 20210419
  Serious: Yes (Other)
  Sender: FDA-Public Use
  Company Number: US-ABBVIE-20K-163-3640009-00

PATIENT
  Sex: Female

DRUGS (1)
  1. HUMIRA [Suspect]
     Active Substance: ADALIMUMAB
     Indication: RHEUMATOID ARTHRITIS
     Route: 058
     Dates: start: 20201016

REACTIONS (12)
  - Joint swelling [Recovered/Resolved]
  - Pruritus [Not Recovered/Not Resolved]
  - Memory impairment [Unknown]
  - Depression [Unknown]
  - Erythema [Not Recovered/Not Resolved]
  - Fatigue [Unknown]
  - Joint stiffness [Recovered/Resolved]
  - Pain [Unknown]
  - Anxiety [Unknown]
  - Arthralgia [Recovered/Resolved]
  - Loss of consciousness [Unknown]
  - Drug ineffective [Unknown]

NARRATIVE: CASE EVENT DATE: 2020
